FAERS Safety Report 17876288 (Version 2)
Quarter: 2021Q3

REPORT INFORMATION
  Report Type: Spontaneous
  Country: US (occurrence: US)
  Receive Date: 20200609
  Receipt Date: 20210924
  Transmission Date: 20211014
  Serious: Yes (Hospitalization, Other)
  Sender: FDA-Public Use
  Company Number: US-TEVA-2020-US-1245139

PATIENT
  Age: 86 Year
  Sex: Female

DRUGS (14)
  1. AMLODIPINE /VALSARTAN /HYDROCHLOROTHIAZIDE [Suspect]
     Active Substance: AMLODIPINE\HYDROCHLOROTHIAZIDE\VALSARTAN
     Indication: HYPERTENSION
     Dosage: 10?320?25 MG
     Route: 048
     Dates: start: 20141215, end: 20150727
  2. TYLENOL [Concomitant]
     Active Substance: ACETAMINOPHEN
     Route: 048
  3. AMLODIPINE/VALSARTAN TORRENT PHARMACEUTICALS [Suspect]
     Active Substance: AMLODIPINE\VALSARTAN
     Indication: HYPERTENSION
     Dosage: 10?320 MG
     Route: 048
     Dates: start: 20150720, end: 20181012
  4. AMLODIPINE [Concomitant]
     Active Substance: AMLODIPINE BESYLATE
     Dosage: 10 MILLIGRAM DAILY;
     Route: 048
  5. ASPIRIN. [Concomitant]
     Active Substance: ASPIRIN
     Indication: PAIN
     Dosage: 81 MILLIGRAM DAILY;
     Route: 048
     Dates: start: 1998
  6. FUROSEMIDE. [Concomitant]
     Active Substance: FUROSEMIDE
     Dosage: 40 MILLIGRAM DAILY;
     Route: 048
  7. VALSARTAN/HYDROCHLOROTHIAZIDE?APOTEX [Suspect]
     Active Substance: HYDROCHLOROTHIAZIDE\VALSARTAN
     Indication: HYPERTENSION
     Dosage: 320?25 MG
     Route: 048
     Dates: start: 20141016, end: 20141115
  8. TELMISARTAN. [Concomitant]
     Active Substance: TELMISARTAN
     Dosage: 80 MILLIGRAM DAILY;
     Route: 048
  9. EXFORGE HCT [Suspect]
     Active Substance: AMLODIPINE BESYLATE\HYDROCHLOROTHIAZIDE\VALSARTAN
     Indication: HYPERTENSION
     Dosage: 10?320?25 MG
     Route: 048
     Dates: start: 20141108, end: 20141208
  10. OLMESARTAN?ASCEND [Suspect]
     Active Substance: OLMESARTAN
     Indication: HYPERTENSION
     Route: 048
     Dates: start: 20181126, end: 20190228
  11. TELMISARTAN?ASCEND [Suspect]
     Active Substance: TELMISARTAN
     Indication: HYPERTENSION
     Route: 048
     Dates: start: 20190311, end: 20191116
  12. OLMESARTAN?GLENMARK [Suspect]
     Active Substance: OLMESARTAN
     Indication: HYPERTENSION
     Route: 048
     Dates: start: 20181004, end: 20181201
  13. ROSUVASTATIN. [Concomitant]
     Active Substance: ROSUVASTATIN
     Indication: HYPERLIPIDAEMIA
     Dosage: 5 MILLIGRAM DAILY; EVERY EVENING
     Route: 048
  14. LEVOTHYROXIN [Concomitant]
     Active Substance: LEVOTHYROXINE
     Indication: THYROID DISORDER
     Dosage: 50 MICROGRAM DAILY;
     Route: 048
     Dates: start: 2001

REACTIONS (8)
  - Bladder cancer [Unknown]
  - Fatigue [Unknown]
  - Abdominal pain lower [Unknown]
  - Bladder disorder [Unknown]
  - Groin pain [Unknown]
  - Urinary tract infection [Unknown]
  - Constipation [Unknown]
  - Dysuria [Unknown]

NARRATIVE: CASE EVENT DATE: 2017
